FAERS Safety Report 14540843 (Version 1)
Quarter: 2018Q1

REPORT INFORMATION
  Report Type: Spontaneous
  Country: TR (occurrence: TR)
  Receive Date: 20180216
  Receipt Date: 20180216
  Transmission Date: 20180509
  Serious: Yes (Life-Threatening, Hospitalization, Other)
  Sender: FDA-Public Use
  Company Number: TR-OTSUKA-KJ20080497

PATIENT
  Age: 23 Year
  Sex: Female
  Weight: 57 kg

DRUGS (5)
  1. PAXIL [Suspect]
     Active Substance: PAROXETINE HYDROCHLORIDE
     Indication: PSYCHOTIC DISORDER
     Dosage: 20MG ONCE DAILY)  08-FEB-2008: 60MG  STOPPED: 08-FEB-2008
     Route: 048
     Dates: start: 20070914, end: 20080207
  2. PAXIL [Suspect]
     Active Substance: PAROXETINE HYDROCHLORIDE
     Dosage: UNK
     Route: 048
     Dates: start: 20080208, end: 20080208
  3. ABILIFY [Suspect]
     Active Substance: ARIPIPRAZOLE
     Dosage: UNK
     Route: 048
     Dates: start: 20080208
  4. ABILIFY [Suspect]
     Active Substance: ARIPIPRAZOLE
     Indication: PSYCHOTIC DISORDER
     Dosage: UNK
     Route: 048
     Dates: start: 20071128, end: 20080207
  5. ABILIFY [Suspect]
     Active Substance: ARIPIPRAZOLE
     Dosage: UNK
     Route: 048

REACTIONS (4)
  - Toxicity to various agents [Recovering/Resolving]
  - Tremor [Recovering/Resolving]
  - Muscle rigidity [Recovering/Resolving]
  - Parkinsonism [Recovering/Resolving]

NARRATIVE: CASE EVENT DATE: 20080208
